FAERS Safety Report 8444244-0 (Version None)
Quarter: 2012Q2

REPORT INFORMATION
  Report Type: 
  Country: None (occurrence: None)
  Receive Date: 20120618
  Receipt Date: 20120607
  Transmission Date: 20120825
  Serious: Yes (Hospitalization)
  Sender: FDA-Public Use
  Company Number: IT-ASTELLAS-2012US005394

PATIENT

DRUGS (2)
  1. TARCEVA [Suspect]
     Indication: NON-SMALL CELL LUNG CANCER
     Dosage: 150 UNK, UNKNOWN/D
     Route: 048
     Dates: start: 20120327
  2. TARCEVA [Suspect]
     Dosage: 100 UNK, UNKNOWN/D
     Route: 048
     Dates: end: 20120430

REACTIONS (1)
  - ASPERGILLOSIS [None]
